FAERS Safety Report 6446931-2 (Version None)
Quarter: 2009Q4

REPORT INFORMATION
  Report Type: 
  Country: None (occurrence: None)
  Receive Date: 20091119
  Receipt Date: 20091110
  Transmission Date: 20100525
  Serious: Yes (Death)
  Sender: FDA-Public Use
  Company Number: JP-MERCK-0911USA00895

PATIENT
  Age: 88 Year
  Sex: Female

DRUGS (6)
  1. FOSAMAX [Suspect]
     Indication: OSTEOPOROSIS
     Route: 048
     Dates: start: 20090816, end: 20091008
  2. ASPENON [Suspect]
     Indication: VENTRICULAR EXTRASYSTOLES
     Route: 048
     Dates: start: 20090805, end: 20091008
  3. MOBIC [Suspect]
     Indication: BACK PAIN
     Route: 048
     Dates: start: 20090805, end: 20091008
  4. ARTIST [Suspect]
     Indication: VENTRICULAR EXTRASYSTOLES
     Route: 048
     Dates: start: 20090805, end: 20091008
  5. MAGMITT [Suspect]
     Indication: CONSTIPATION
     Route: 048
     Dates: start: 20090815, end: 20091008
  6. MUCOSTA [Suspect]
     Indication: GASTRITIS
     Route: 048
     Dates: start: 20090815, end: 20091008

REACTIONS (3)
  - AGRANULOCYTOSIS [None]
  - PNEUMONIA [None]
  - SEPSIS [None]
